FAERS Safety Report 24716790 (Version 2)
Quarter: 2024Q4

REPORT INFORMATION
  Report Type: Report from Study
  Country: AU (occurrence: AU)
  Receive Date: 20241210
  Receipt Date: 20241212
  Transmission Date: 20250114
  Serious: Yes (Death)
  Sender: KARYOPHARM THERAPEUTICS
  Company Number: AU-ANTENGENE-20241202894

PATIENT
  Age: 49 Year
  Sex: Female

DRUGS (1)
  1. SELINEXOR [Suspect]
     Active Substance: SELINEXOR
     Indication: Central nervous system lymphoma
     Dosage: 60 MG, BIW

REACTIONS (1)
  - Central nervous system lymphoma [Fatal]
